FAERS Safety Report 25775347 (Version 1)
Quarter: 2025Q3

REPORT INFORMATION
  Report Type: Spontaneous
  Country: US (occurrence: US)
  Receive Date: 20250909
  Receipt Date: 20250909
  Transmission Date: 20251020
  Serious: No
  Sender: ENDO
  Company Number: US-ENDO USA, INC.-2024-050816

PATIENT
  Sex: Female

DRUGS (1)
  1. CLONAZEPAM [Suspect]
     Active Substance: CLONAZEPAM
     Indication: Product used for unknown indication
     Route: 065
     Dates: start: 202405

REACTIONS (4)
  - Hyperhidrosis [Unknown]
  - Dizziness [Unknown]
  - Vertigo [Unknown]
  - Palpitations [Unknown]

NARRATIVE: CASE EVENT DATE: 20240501
